FAERS Safety Report 9897945 (Version 2)
Quarter: 2014Q2

REPORT INFORMATION
  Report Type: Spontaneous
  Country: US (occurrence: US)
  Receive Date: 20140214
  Receipt Date: 20140403
  Transmission Date: 20141212
  Serious: No
  Sender: FDA-Public Use
  Company Number: US-PFIZER INC-2014040381

PATIENT
  Age: 61 Year
  Sex: Female
  Weight: 77.1 kg

DRUGS (4)
  1. ESTRING [Suspect]
     Indication: VULVOVAGINAL DRYNESS
     Dosage: 2 MG, UNK
     Route: 067
     Dates: start: 2009
  2. LIPITOR [Concomitant]
     Dosage: 20 MG, UNK
  3. CELEXA [Concomitant]
     Dosage: 40 MG, UNK
  4. ATENOLOL [Concomitant]
     Indication: HYPERTENSION
     Dosage: 50 MG, 2X/DAY

REACTIONS (1)
  - Nasopharyngitis [Unknown]
